FAERS Safety Report 23192090 (Version 1)
Quarter: 2023Q4

REPORT INFORMATION
  Report Type: Spontaneous
  Country: FR (occurrence: FR)
  Receive Date: 20231116
  Receipt Date: 20231116
  Transmission Date: 20240110
  Serious: Yes (Life-Threatening, Hospitalization)
  Sender: FDA-Public Use
  Company Number: None

PATIENT
  Age: 39 Year
  Sex: Male

DRUGS (3)
  1. MIRTAZAPINE [Suspect]
     Active Substance: MIRTAZAPINE
     Indication: Product used for unknown indication
     Dosage: 15 MG X3 (45 MG IN ONE ONLY INTAKE)
     Route: 048
     Dates: start: 20230309, end: 20230309
  2. METHADONE [Suspect]
     Active Substance: METHADONE HYDROCHLORIDE
     Indication: Drug dependence
     Dosage: 40 MG X 7 (280 MG) IN ONE ONLY INTAKE
     Route: 048
     Dates: start: 20230309, end: 20230309
  3. VALIUM [Suspect]
     Active Substance: DIAZEPAM
     Indication: Product used for unknown indication
     Dosage: 50 MG IN ONE INTAKE
     Route: 048
     Dates: start: 20230309, end: 20230309

REACTIONS (3)
  - Coma [Recovered/Resolved]
  - Drug abuse [Recovered/Resolved]
  - Pneumonia aspiration [Recovered/Resolved]

NARRATIVE: CASE EVENT DATE: 20230309
